FAERS Safety Report 17592921 (Version 1)
Quarter: 2020Q1

REPORT INFORMATION
  Report Type: Spontaneous
  Country: US (occurrence: US)
  Receive Date: 20200327
  Receipt Date: 20200327
  Transmission Date: 20200409
  Serious: No
  Sender: FDA-Public Use
  Company Number: US-AMNEAL PHARMACEUTICALS-2019-IPXL-00651

PATIENT
  Age: 82 Year
  Sex: Female
  Weight: 49 kg

DRUGS (3)
  1. NEXIUM [Concomitant]
     Active Substance: ESOMEPRAZOLE MAGNESIUM
     Indication: DYSPEPSIA
     Dosage: 1 DOSAGE FORM, QD
     Route: 048
  2. ALENDRONATE SODIUM IR [Suspect]
     Active Substance: ALENDRONATE SODIUM
     Indication: OSTEOPOROSIS
     Dosage: 70 MILLIGRAM, 1 /WEEK
     Route: 065
     Dates: start: 201902
  3. CALCIUM [Concomitant]
     Active Substance: CALCIUM
     Indication: OSTEOPOROSIS
     Dosage: 1 DOSAGE FORM, QD
     Route: 048

REACTIONS (3)
  - Dyspepsia [Recovered/Resolved]
  - Back pain [Unknown]
  - Constipation [Unknown]

NARRATIVE: CASE EVENT DATE: 201902
